FAERS Safety Report 12323647 (Version 1)
Quarter: 2016Q2

REPORT INFORMATION
  Report Type: Report from Study
  Country: US (occurrence: US)
  Receive Date: 20160502
  Receipt Date: 20160502
  Transmission Date: 20160815
  Serious: Yes (Death, Hospitalization, Other)
  Sender: FDA-Public Use
  Company Number: US-B.I. PHARMACEUTICALS,INC./RIDGEFIELD-2015-BI-25765BI

PATIENT
  Age: 77 Year
  Sex: Female

DRUGS (2)
  1. GILOTRIF [Suspect]
     Active Substance: AFATINIB
     Indication: METASTASES TO CENTRAL NERVOUS SYSTEM
  2. GILOTRIF [Suspect]
     Active Substance: AFATINIB
     Indication: LUNG CARCINOMA CELL TYPE UNSPECIFIED STAGE IV
     Dosage: 40 MG
     Route: 048
     Dates: start: 20150501, end: 20150511

REACTIONS (7)
  - Diarrhoea [Recovered/Resolved]
  - Sepsis [Unknown]
  - Dyspnoea [Unknown]
  - Urinary tract infection [Unknown]
  - Mucosal inflammation [Recovered/Resolved]
  - Oropharyngeal blistering [Unknown]
  - Death [Fatal]

NARRATIVE: CASE EVENT DATE: 20150511
